FAERS Safety Report 4944524-7 (Version None)
Quarter: 2006Q1

REPORT INFORMATION
  Report Type: 
  Country: None (occurrence: None)
  Receive Date: 20060123
  Receipt Date: 20051005
  Transmission Date: 20060701
  Serious: No
  Sender: FDA-Public Use
  Company Number: 2005-BP-17779BP

PATIENT

DRUGS (1)
  1. APTIVUS [Suspect]
     Indication: HIV INFECTION
     Dosage: SEE TEXT, TPV/R 250 MG/100 MG PO
     Route: 048

REACTIONS (1)
  - HAEMOLYTIC ANAEMIA [None]
